FAERS Safety Report 5717284-X (Version None)
Quarter: 2008Q2

REPORT INFORMATION
  Report Type: 
  Country: None (occurrence: None)
  Receive Date: 20080423
  Receipt Date: 20080414
  Transmission Date: 20081010
  Serious: Yes (Life-Threatening, Hospitalization)
  Sender: FDA-Public Use
  Company Number: S08-FRA-01342-01

PATIENT
  Age: 84 Year
  Sex: Male

DRUGS (3)
  1. ESCITALOPRAM [Suspect]
     Dates: end: 20071205
  2. FUROSEMIDE [Suspect]
     Dates: end: 20071205
  3. SECTRAL [Concomitant]

REACTIONS (5)
  - CARDIAC ARREST [None]
  - ELECTROCARDIOGRAM QT PROLONGED [None]
  - HYPOKALAEMIA [None]
  - SYNCOPE [None]
  - TORSADE DE POINTES [None]
